FAERS Safety Report 21300570 (Version 5)
Quarter: 2025Q4

REPORT INFORMATION
  Report Type: Spontaneous
  Country: EU (occurrence: EU)
  Receive Date: 20220907
  Receipt Date: 20251111
  Transmission Date: 20260118
  Serious: No
  Sender: BRISTOL-MYERS SQUIBB COMPANY
  Company Number: EU-Accord-263988

PATIENT
  Age: 77 Year
  Sex: Female

DRUGS (23)
  1. APIXABAN [Suspect]
     Active Substance: APIXABAN
     Indication: Ventricular tachycardia
  2. APIXABAN [Suspect]
     Active Substance: APIXABAN
     Indication: Anticoagulant therapy
  3. PACLITAXEL [Suspect]
     Active Substance: PACLITAXEL
     Indication: Product used for unknown indication
  4. PACLITAXEL [Suspect]
     Active Substance: PACLITAXEL
     Indication: Invasive ductal breast carcinoma
     Dosage: WEEKLY
     Dates: start: 202112
  5. ANASTROZOLE [Suspect]
     Active Substance: ANASTROZOLE
     Indication: Invasive ductal breast carcinoma
     Dates: start: 202002, end: 202103
  6. DENOSUMAB [Concomitant]
     Active Substance: DENOSUMAB
     Indication: Breast cancer
  7. DENOSUMAB [Concomitant]
     Active Substance: DENOSUMAB
  8. DENOSUMAB [Concomitant]
     Active Substance: DENOSUMAB
  9. DENOSUMAB [Concomitant]
     Active Substance: DENOSUMAB
  10. DENOSUMAB [Concomitant]
     Active Substance: DENOSUMAB
  11. DENOSUMAB [Concomitant]
     Active Substance: DENOSUMAB
  12. DENOSUMAB [Concomitant]
     Active Substance: DENOSUMAB
  13. DENOSUMAB [Concomitant]
     Active Substance: DENOSUMAB
  14. PALBOCICLIB [Concomitant]
     Active Substance: PALBOCICLIB
     Indication: Invasive ductal breast carcinoma
     Dosage: FREQUENCY: WEEKLY
     Dates: start: 202103
  15. REMDESIVIR [Concomitant]
     Active Substance: REMDESIVIR
     Indication: COVID-19
  16. REMDESIVIR [Concomitant]
     Active Substance: REMDESIVIR
  17. REMDESIVIR [Concomitant]
     Active Substance: REMDESIVIR
  18. REMDESIVIR [Concomitant]
     Active Substance: REMDESIVIR
  19. REMDESIVIR [Concomitant]
     Active Substance: REMDESIVIR
  20. REMDESIVIR [Concomitant]
     Active Substance: REMDESIVIR
  21. REMDESIVIR [Concomitant]
     Active Substance: REMDESIVIR
  22. REMDESIVIR [Concomitant]
     Active Substance: REMDESIVIR
  23. FULVESTRANT [Concomitant]
     Active Substance: FULVESTRANT
     Indication: Invasive ductal breast carcinoma

REACTIONS (1)
  - No adverse event [Unknown]
